FAERS Safety Report 21907550 (Version 1)
Quarter: 2023Q1

REPORT INFORMATION
  Report Type: Other
  Country: US (occurrence: None)
  Receive Date: 20230125
  Receipt Date: 20230125
  Transmission Date: 20230417
  Serious: No
  Sender: FDA-Public Use
  Company Number: US-ROCHE-3271109

PATIENT
  Age: 59 Year
  Sex: Male
  Weight: 95.340 kg

DRUGS (1)
  1. OCREVUS [Suspect]
     Active Substance: OCRELIZUMAB
     Indication: Relapsing-remitting multiple sclerosis
     Dosage: INITIAL DOSE: 300 MG EVERY 2 WEEKS?LAST DATE OF TREATEMNT: /JUN/2021
     Route: 042
     Dates: start: 20191012, end: 202106

REACTIONS (2)
  - COVID-19 [Unknown]
  - Ear infection [Unknown]

NARRATIVE: CASE EVENT DATE: 20221231
